FAERS Safety Report 14165145 (Version 2)
Quarter: 2017Q4

REPORT INFORMATION
  Report Type: Spontaneous
  Country: IN (occurrence: IN)
  Receive Date: 20171107
  Receipt Date: 20171225
  Transmission Date: 20180321
  Serious: Yes (Disabling, Other)
  Sender: FDA-Public Use
  Company Number: IN-ROCHE-2020257

PATIENT
  Age: 55 Year
  Sex: Female
  Weight: 78 kg

DRUGS (2)
  1. ACCENTRIX [Suspect]
     Active Substance: RANIBIZUMAB
     Indication: MACULAR OEDEMA
     Route: 031
  2. ACCENTRIX [Suspect]
     Active Substance: RANIBIZUMAB
     Indication: DIABETIC RETINOPATHY
     Dosage: 0.05 OT
     Route: 031
     Dates: start: 20171016

REACTIONS (7)
  - Blindness [Unknown]
  - Corneal oedema [Unknown]
  - Vitritis [Unknown]
  - Eye pain [Unknown]
  - Endophthalmitis [Not Recovered/Not Resolved]
  - Vomiting [Unknown]
  - Lens dislocation [Unknown]

NARRATIVE: CASE EVENT DATE: 20171018
